FAERS Safety Report 9628248 (Version 1)
Quarter: 2013Q4

REPORT INFORMATION
  Report Type: Spontaneous
  Country: US (occurrence: US)
  Receive Date: 20131017
  Receipt Date: 20131017
  Transmission Date: 20140711
  Serious: No
  Sender: FDA-Public Use
  Company Number: US-B.I. PHARMACEUTICALS,INC./RIDGEFIELD-2013-BI-31506BP

PATIENT
  Sex: Female

DRUGS (1)
  1. COMBIVENT [Suspect]
     Indication: SARCOIDOSIS
     Dosage: STRENGTH: 20 MCG / 100 MCG; DAILY DOSE: 60 MCG/ 300 MCG
     Route: 055
     Dates: start: 201307

REACTIONS (3)
  - Respiratory tract infection [Not Recovered/Not Resolved]
  - Pulmonary congestion [Not Recovered/Not Resolved]
  - Off label use [Not Recovered/Not Resolved]
